FAERS Safety Report 9491556 (Version 2)
Quarter: 2015Q3

REPORT INFORMATION
  Report Type: Spontaneous
  Country: US (occurrence: US)
  Receive Date: 20121219
  Receipt Date: 20150708
  Transmission Date: 20151125
  Serious: Yes (Hospitalization)
  Sender: FDA-Public Use
  Company Number: US-LUNDBECK-DKLU1081790

PATIENT
  Age: 39 Year
  Sex: Male

DRUGS (3)
  1. ONFI [Suspect]
     Active Substance: CLOBAZAM
     Route: 065
     Dates: start: 20120405
  2. ONFI [Suspect]
     Active Substance: CLOBAZAM
     Indication: SEIZURE
     Route: 048
  3. ONFI [Suspect]
     Active Substance: CLOBAZAM
     Route: 065
     Dates: start: 20120405

REACTIONS (1)
  - Post procedural complication [Recovered/Resolved]

NARRATIVE: CASE EVENT DATE: 201206
